FAERS Safety Report 17564797 (Version 2)
Quarter: 2020Q2

REPORT INFORMATION
  Report Type: Spontaneous
  Country: GB (occurrence: GB)
  Receive Date: 20200320
  Receipt Date: 20200513
  Transmission Date: 20200713
  Serious: Yes (Hospitalization, Other)
  Sender: FDA-Public Use
  Company Number: GB-BAYER-2020-045611

PATIENT
  Age: 53 Year
  Sex: Male

DRUGS (1)
  1. NEXAVAR [Suspect]
     Active Substance: SORAFENIB
     Indication: ACUTE MYELOID LEUKAEMIA
     Dosage: 200 MG, BID
     Route: 048
     Dates: start: 20190325, end: 201905

REACTIONS (5)
  - Off label use [None]
  - Graft versus host disease [Recovering/Resolving]
  - Respiratory tract infection fungal [Recovering/Resolving]
  - Product use in unapproved indication [None]
  - Platelet count decreased [None]

NARRATIVE: CASE EVENT DATE: 20190325
